FAERS Safety Report 14355380 (Version 3)
Quarter: 2018Q1

REPORT INFORMATION
  Report Type: Spontaneous
  Country: JP (occurrence: JP)
  Receive Date: 20180105
  Receipt Date: 20180301
  Transmission Date: 20180509
  Serious: Yes (Hospitalization, Disabling, Other)
  Sender: FDA-Public Use
  Company Number: JP-JNJFOC-20180105352

PATIENT
  Age: 49 Year
  Sex: Male
  Weight: 118 kg

DRUGS (12)
  1. TRESIBA [Concomitant]
     Active Substance: INSULIN DEGLUDEC
     Dosage: STARTED BEFORE 24-JUL-2014
     Route: 058
     Dates: start: 20140930
  2. EQUA [Concomitant]
     Active Substance: VILDAGLIPTIN
     Route: 048
     Dates: start: 20160519
  3. EQUA [Concomitant]
     Active Substance: VILDAGLIPTIN
     Route: 065
  4. INSULIN [Concomitant]
     Active Substance: INSULIN NOS
     Route: 065
  5. METGLUCO [Concomitant]
     Active Substance: METFORMIN HYDROCHLORIDE
     Dosage: STARTED BEFORE 24-JUL-2014
     Route: 048
     Dates: end: 20160502
  6. LANTUS [Concomitant]
     Active Substance: INSULIN GLARGINE
     Route: 058
     Dates: end: 20140929
  7. CANAGLU [Suspect]
     Active Substance: CANAGLIFLOZIN
     Indication: TYPE 2 DIABETES MELLITUS
     Route: 048
     Dates: start: 20141103, end: 20160502
  8. AMARYL [Concomitant]
     Active Substance: GLIMEPIRIDE
     Route: 048
  9. LANTUS [Concomitant]
     Active Substance: INSULIN GLARGINE
     Dosage: STARTED BEFORE 24-JUL-2014
     Route: 058
  10. TRESIBA [Concomitant]
     Active Substance: INSULIN DEGLUDEC
     Route: 058
     Dates: end: 20160529
  11. EQUA [Concomitant]
     Active Substance: VILDAGLIPTIN
     Route: 048
     Dates: start: 20151222, end: 20160502
  12. AMLODIN [Concomitant]
     Active Substance: AMLODIPINE BESYLATE
     Route: 048
     Dates: start: 20150706

REACTIONS (5)
  - Diabetic foot [Recovered/Resolved with Sequelae]
  - Diabetic gangrene [Not Recovered/Not Resolved]
  - Osteomyelitis [Unknown]
  - Sepsis [Unknown]
  - Weight fluctuation [Unknown]

NARRATIVE: CASE EVENT DATE: 20160502
